FAERS Safety Report 23103297 (Version 1)
Quarter: 2023Q4

REPORT INFORMATION
  Report Type: Spontaneous
  Country: US (occurrence: None)
  Receive Date: 20231020
  Receipt Date: 20231020
  Transmission Date: 20240110
  Serious: Yes (Life-Threatening)
  Sender: FDA-Public Use
  Company Number: None

PATIENT
  Age: 48 Year
  Sex: Male
  Weight: 97.4 kg

DRUGS (2)
  1. DEPAKOTE [Suspect]
     Active Substance: DIVALPROEX SODIUM
     Indication: Epilepsy
  2. LACOSAMIDE [Suspect]
     Active Substance: LACOSAMIDE

REACTIONS (2)
  - Rash [None]
  - Treatment failure [None]

NARRATIVE: CASE EVENT DATE: 20231020
